FAERS Safety Report 23059856 (Version 1)
Quarter: 2023Q4

REPORT INFORMATION
  Report Type: Spontaneous
  Country: RO (occurrence: None)
  Receive Date: 20231012
  Receipt Date: 20231012
  Transmission Date: 20240110
  Serious: Yes (Other)
  Sender: FDA-Public Use
  Company Number: 2023A227525

PATIENT
  Age: 76 Year
  Sex: Female

DRUGS (2)
  1. QTERN [Suspect]
     Active Substance: DAPAGLIFLOZIN\SAXAGLIPTIN HYDROCHLORIDE
     Indication: Diabetes mellitus
     Route: 048
  2. DAPAGLIFLOZIN [Suspect]
     Active Substance: DAPAGLIFLOZIN
     Route: 048

REACTIONS (7)
  - Breast cancer [Unknown]
  - Urinary tract infection [Unknown]
  - Nodule [Unknown]
  - Hypotension [Unknown]
  - Hypoglycaemia [Unknown]
  - Liver injury [Unknown]
  - Dry mouth [Unknown]
